FAERS Safety Report 11608214 (Version 1)
Quarter: 2015Q4

REPORT INFORMATION
  Report Type: Spontaneous
  Country: FR (occurrence: FR)
  Receive Date: 20151007
  Receipt Date: 20151007
  Transmission Date: 20160304
  Serious: Yes (Death, Other)
  Sender: FDA-Public Use
  Company Number: FR-PFIZER INC-2015330290

PATIENT
  Age: 57 Year
  Sex: Male

DRUGS (3)
  1. MALACEF [Suspect]
     Active Substance: ARTESUNATE
     Indication: MALARIA
     Dosage: 216 MG, SINGLE
     Route: 042
     Dates: start: 20150730, end: 20150730
  2. DALACINE [Suspect]
     Active Substance: CLINDAMYCIN HYDROCHLORIDE
     Dosage: UNK, SINGLE
     Route: 042
     Dates: start: 20150730, end: 20150730
  3. CEFOTAXIME [Suspect]
     Active Substance: CEFOTAXIME SODIUM
     Dosage: UNK UNK, SINGLE
     Dates: start: 20150730, end: 20150730

REACTIONS (2)
  - Condition aggravated [Fatal]
  - Cardiac arrest [Fatal]

NARRATIVE: CASE EVENT DATE: 20150730
